FAERS Safety Report 6245857-7 (Version None)
Quarter: 2009Q2

REPORT INFORMATION
  Report Type: 
  Country: None (occurrence: None)
  Receive Date: 20090626
  Receipt Date: 20090616
  Transmission Date: 20091009
  Serious: Yes (Death, Hospitalization)
  Sender: FDA-Public Use
  Company Number: 12352548

PATIENT
  Age: 57 Year
  Sex: Male

DRUGS (4)
  1. EFAVIRENZ [Suspect]
     Indication: HIV INFECTION
     Route: 048
     Dates: end: 19990101
  2. STAVUDINE [Concomitant]
     Indication: HIV INFECTION
     Dates: start: 19940101, end: 20000101
  3. VALGANCICLOVIR HCL [Concomitant]
     Dosage: VALGANCICLOVIR HYDROCHLORIDE
     Dates: start: 19980801, end: 20000401
  4. ZALCITABINE [Concomitant]

REACTIONS (10)
  - ANAEMIA [None]
  - ASTHENIA [None]
  - ATAXIA [None]
  - BLOOD LACTIC ACID INCREASED [None]
  - DEATH [None]
  - DIZZINESS [None]
  - MUSCLE RIGIDITY [None]
  - NEUROPATHY PERIPHERAL [None]
  - OPTIC ATROPHY [None]
  - TREMOR [None]
